FAERS Safety Report 26118955 (Version 4)
Quarter: 2025Q4

REPORT INFORMATION
  Report Type: Report from Study
  Country: US (occurrence: US)
  Receive Date: 20251204
  Receipt Date: 20251221
  Transmission Date: 20260118
  Serious: Yes (Death, Other)
  Sender: ABBVIE
  Company Number: US-ABBVIE-6572927

PATIENT
  Age: 78 Year
  Sex: Male
  Weight: 40 kg

DRUGS (1)
  1. RINVOQ [Suspect]
     Active Substance: UPADACITINIB
     Indication: Colitis ulcerative
     Route: 048
     Dates: start: 20251014, end: 20251118

REACTIONS (22)
  - Parkinson^s disease [Fatal]
  - Multiple system atrophy [Not Recovered/Not Resolved]
  - Stomatitis [Unknown]
  - Lip infection [Unknown]
  - Weight decreased [Not Recovered/Not Resolved]
  - Pruritus [Recovered/Resolved]
  - Hospice care [Unknown]
  - Skin haemorrhage [Recovered/Resolved]
  - Oral mucosal blistering [Not Recovered/Not Resolved]
  - Foot fracture [Not Recovered/Not Resolved]
  - Oropharyngeal pain [Unknown]
  - Diarrhoea [Not Recovered/Not Resolved]
  - Limb injury [Not Recovered/Not Resolved]
  - Contusion [Not Recovered/Not Resolved]
  - Diarrhoea [Not Recovered/Not Resolved]
  - Hip fracture [Not Recovered/Not Resolved]
  - Haemorrhoids [Not Recovered/Not Resolved]
  - Haemorrhage [Not Recovered/Not Resolved]
  - Fall [Recovered/Resolved]
  - Fall [Unknown]
  - Colitis ulcerative [Fatal]
  - Dementia [Fatal]

NARRATIVE: CASE EVENT DATE: 20240101
